FAERS Safety Report 5656698-3 (Version None)
Quarter: 2008Q2

REPORT INFORMATION
  Report Type: 
  Country: None (occurrence: None)
  Receive Date: 20080306
  Receipt Date: 20080306
  Transmission Date: 20081010
  Serious: Yes (Other)
  Sender: FDA-Public Use
  Company Number: None

PATIENT
  Age: 55 Year
  Sex: Male
  Weight: 95.709 kg

DRUGS (2)
  1. WELLBUTRIN XL [Suspect]
     Indication: DEPRESSION
     Dosage: 1  QAM  PO
     Route: 048
     Dates: start: 20050309, end: 20080203
  2. BUPROPION HCL [Suspect]
     Indication: DEPRESSION
     Dosage: 1  QAM  PO
     Route: 048
     Dates: start: 20080204, end: 20080218

REACTIONS (3)
  - DEPRESSION [None]
  - DISEASE RECURRENCE [None]
  - THERAPEUTIC RESPONSE UNEXPECTED WITH DRUG SUBSTITUTION [None]
